FAERS Safety Report 12551840 (Version 1)
Quarter: 2016Q3

REPORT INFORMATION
  Report Type: Spontaneous
  Country: US (occurrence: US)
  Receive Date: 20160713
  Receipt Date: 20160713
  Transmission Date: 20161109
  Serious: No
  Sender: FDA-Public Use
  Company Number: US-BEH-2016070463

PATIENT
  Sex: Male
  Weight: 76.19 kg

DRUGS (15)
  1. ACETAMINOPHEN. [Concomitant]
     Active Substance: ACETAMINOPHEN
  2. OMEGA-3                            /01866101/ [Concomitant]
     Active Substance: OMEGA-3 FATTY ACIDS
  3. COLACE [Concomitant]
     Active Substance: DOCUSATE SODIUM
  4. HIZENTRA [Suspect]
     Active Substance: HUMAN IMMUNOGLOBULIN G
     Indication: IMMUNODEFICIENCY COMMON VARIABLE
     Dosage: 28 G, QOW
     Route: 058
  5. CLONIDINE. [Concomitant]
     Active Substance: CLONIDINE
  6. EPIPEN [Concomitant]
     Active Substance: EPINEPHRINE
  7. XOPENEX HFA [Concomitant]
     Active Substance: LEVALBUTEROL TARTRATE
  8. TEMAZEPAM. [Concomitant]
     Active Substance: TEMAZEPAM
  9. DIPHENHYDRAMINE                    /00000402/ [Concomitant]
     Active Substance: DIPHENHYDRAMINE
  10. PROPRANOLOL HCL [Concomitant]
     Active Substance: PROPRANOLOL HYDROCHLORIDE
  11. VORTIOXETINE [Concomitant]
     Active Substance: VORTIOXETINE
  12. PULMICORT TURBUHALER [Concomitant]
     Active Substance: BUDESONIDE
  13. FISH OIL                           /00492901/ [Concomitant]
     Active Substance: COD LIVER OIL
  14. LMX                                /00033401/ [Concomitant]
  15. VITAMIN D                          /00107901/ [Concomitant]
     Active Substance: ERGOCALCIFEROL

REACTIONS (2)
  - Cough [Unknown]
  - Nasopharyngitis [Unknown]
